FAERS Safety Report 12864350 (Version 2)
Quarter: 2017Q1

REPORT INFORMATION
  Report Type: Spontaneous
  Country: US (occurrence: US)
  Receive Date: 20161020
  Receipt Date: 20170301
  Transmission Date: 20170428
  Serious: Yes (Other)
  Sender: FDA-Public Use
  Company Number: US-TEVA-683951USA

PATIENT
  Sex: Female

DRUGS (4)
  1. RISEDRONIC ACID [Suspect]
     Active Substance: RISEDRONIC ACID
     Indication: LOSS OF CONSCIOUSNESS
     Route: 065
     Dates: start: 20160831, end: 20160926
  2. ZOLOFT [Concomitant]
     Active Substance: SERTRALINE HYDROCHLORIDE
     Dosage: 100 MILLIGRAM DAILY;
  3. MULTIVITAMIN [Concomitant]
     Active Substance: VITAMINS
  4. INDOMETHACIN. [Concomitant]
     Active Substance: INDOMETHACIN
     Dosage: TAKEN HS

REACTIONS (7)
  - Asthenia [Not Recovered/Not Resolved]
  - Drug hypersensitivity [Unknown]
  - Muscle spasms [Unknown]
  - Loss of consciousness [Not Recovered/Not Resolved]
  - Nausea [Not Recovered/Not Resolved]
  - Myalgia [Not Recovered/Not Resolved]
  - Off label use [Unknown]
